FAERS Safety Report 18564729 (Version 1)
Quarter: 2020Q4

REPORT INFORMATION
  Report Type: Spontaneous
  Country: US (occurrence: US)
  Receive Date: 20201123
  Receipt Date: 20201123
  Transmission Date: 20210114
  Serious: Yes (Hospitalization)
  Sender: FDA-Public Use
  Company Number: None

PATIENT
  Age: 66 Year
  Sex: Male
  Weight: 72 kg

DRUGS (1)
  1. SIMVASTATIN 80MG [Suspect]
     Active Substance: SIMVASTATIN
     Indication: ACUTE MYOCARDIAL INFARCTION
     Dosage: ?          QUANTITY:1 DF DOSAGE FORM;OTHER FREQUENCY:9 TTS;?
     Route: 048
     Dates: start: 20160723, end: 20170602

REACTIONS (3)
  - Acute kidney injury [None]
  - Dialysis [None]
  - Rhabdomyolysis [None]

NARRATIVE: CASE EVENT DATE: 20170602
